FAERS Safety Report 8407625-7 (Version None)
Quarter: 2012Q2

REPORT INFORMATION
  Report Type: 
  Country: None (occurrence: None)
  Receive Date: 20120604
  Receipt Date: 20120531
  Transmission Date: 20120825
  Serious: Yes (Life-Threatening)
  Sender: FDA-Public Use
  Company Number: SE-ASTRAZENECA-2012SE36144

PATIENT
  Age: 52 Year
  Sex: Male

DRUGS (5)
  1. ANTABUSE [Concomitant]
  2. SEROQUEL [Suspect]
     Route: 048
     Dates: end: 20120416
  3. SEROQUEL [Suspect]
     Route: 048
     Dates: end: 20120416
  4. SEROQUEL [Suspect]
     Indication: BIPOLAR I DISORDER
     Route: 048
     Dates: start: 20120112
  5. SEROQUEL [Suspect]
     Indication: AFFECTIVE DISORDER
     Route: 048
     Dates: start: 20120112

REACTIONS (1)
  - MYOCARDIAL INFARCTION [None]
